FAERS Safety Report 8564970-2 (Version None)
Quarter: 2012Q3

REPORT INFORMATION
  Report Type: 
  Country: None (occurrence: None)
  Receive Date: 20120803
  Receipt Date: 20120726
  Transmission Date: 20120928
  Serious: Yes (Other)
  Sender: FDA-Public Use
  Company Number: JP-VERTEX PHARMACEUTICALS INC.-AE-2012-009137

PATIENT
  Age: 63 Year
  Sex: Female

DRUGS (9)
  1. RIBAVIRIN [Concomitant]
     Route: 048
     Dates: start: 20120530
  2. PEGINTERFERON ALFA-2B [Concomitant]
     Route: 058
     Dates: start: 20120503
  3. TELAVIC (TELAPREVIR) [Suspect]
     Indication: HEPATITIS C
     Route: 048
     Dates: start: 20120426, end: 20120717
  4. PROMAC [Concomitant]
     Route: 048
  5. RIBAVIRIN [Concomitant]
     Route: 048
     Dates: start: 20120509, end: 20120529
  6. RIBAVIRIN [Concomitant]
     Indication: HEPATITIS C
     Route: 048
     Dates: start: 20120426, end: 20120508
  7. ACETAMINOPHEN [Concomitant]
     Route: 048
     Dates: start: 20120426
  8. PROMAC [Concomitant]
     Route: 048
     Dates: start: 20120426
  9. PEGINTERFERON ALFA-2B [Concomitant]
     Indication: HEPATITIS C
     Route: 058
     Dates: start: 20120426, end: 20120502

REACTIONS (4)
  - HAEMOGLOBIN DECREASED [None]
  - RASH PRURITIC [None]
  - WHITE BLOOD CELL COUNT DECREASED [None]
  - BLOOD URIC ACID INCREASED [None]
